FAERS Safety Report 8033266-X (Version None)
Quarter: 2012Q1

REPORT INFORMATION
  Report Type: 
  Country: None (occurrence: None)
  Receive Date: 20120110
  Receipt Date: 20120110
  Transmission Date: 20120608
  Serious: Yes (Hospitalization)
  Sender: FDA-Public Use
  Company Number: JP-PFIZER INC-2010098000

PATIENT
  Age: 11 Year
  Sex: Male

DRUGS (45)
  1. CEFAZOLIN SODIUM [Suspect]
     Dosage: 500 MG, 2X/DAY
     Route: 041
     Dates: start: 20100622, end: 20100624
  2. MIDAZOLAM HCL [Suspect]
     Dosage: 10 MG, 1X/DAY
     Route: 041
     Dates: start: 20100617, end: 20100709
  3. LAXOBERON [Suspect]
     Dosage: 10 ML, UID/QD
     Route: 048
     Dates: start: 20100620, end: 20100620
  4. ACETAMINOPHEN [Suspect]
     Indication: PYREXIA
     Dosage: 300 MG, 1X/DAY
     Route: 048
     Dates: start: 20100627, end: 20100716
  5. MORPHINE HYDROCHLORIDE [Suspect]
     Dosage: 2 MG/KG, 1X/DAY
     Route: 041
     Dates: start: 20100621, end: 20100709
  6. ULTIVA [Suspect]
     Dosage: UNK
     Route: 041
     Dates: start: 20100621, end: 20100708
  7. DEXMEDETOMIDINE HYDROCHLORIDE [Suspect]
     Dosage: UNK
     Route: 041
     Dates: start: 20100704, end: 20100705
  8. PANTHENOL [Suspect]
     Dosage: 25 MG, 2X/DAY
     Route: 041
     Dates: start: 20100604, end: 20100705
  9. FLURBIPROFEN [Suspect]
     Dosage: 3.5 ML, 1X/DAY
     Route: 041
     Dates: start: 20100709, end: 20100709
  10. GLYCERIN [Suspect]
     Indication: CONSTIPATION
     Dosage: UNK
     Route: 054
     Dates: start: 20100627
  11. CEFAZOLIN SODIUM [Suspect]
     Dosage: 1G, UNK
     Route: 048
     Dates: start: 20100711, end: 20100718
  12. RISPERDAL [Suspect]
     Dosage: 0.3 ML, 1X/DAY
     Route: 048
     Dates: start: 20100702, end: 20100714
  13. OMEPRAZOLE [Suspect]
     Dosage: 7.5 MG, 2X/DAY
     Route: 041
     Dates: start: 20100716, end: 20100721
  14. HEPARIN SODIUM [Suspect]
     Dosage: 2 DF, UID/QD
     Route: 041
     Dates: start: 20100617
  15. ATROPINE SULFATE [Suspect]
     Dosage: 0.5 MG, UID/QD
     Route: 041
     Dates: start: 20100617, end: 20100622
  16. ROCURONIUM BROMIDE [Suspect]
     Dosage: 50 MG, 1X/DAY
     Route: 041
     Dates: start: 20100617, end: 20100706
  17. OFLOXACIN [Suspect]
     Dosage: UNK
     Route: 047
     Dates: start: 20100728, end: 20100729
  18. HYALEIN [Suspect]
     Dosage: UNK
     Route: 047
     Dates: start: 20100723, end: 20100821
  19. ATARAX [Suspect]
     Dosage: 25 MG, 1X/DAY
     Route: 041
     Dates: start: 20100709, end: 20100709
  20. DIAZEPAM [Suspect]
     Dosage: 4 ML
     Route: 048
     Dates: start: 20100702, end: 20100722
  21. PIPERACILLIN SODIUM [Suspect]
     Dosage: 375 MG, QID
     Route: 041
     Dates: start: 20100715, end: 20100716
  22. DEPAS [Suspect]
     Dosage: 1 DF, UID/QD
     Route: 048
     Dates: start: 20100701, end: 20100701
  23. HEPARIN [Suspect]
     Dosage: 5 IU/KG, UID/QD
     Route: 041
     Dates: start: 20100808, end: 20100812
  24. DECADRON [Suspect]
     Dosage: 2 MG
     Route: 041
     Dates: start: 20100617, end: 20100622
  25. NICARDIPINE HCL [Suspect]
     Dosage: UNK
     Route: 041
  26. ACETAMINOPHEN [Suspect]
     Dosage: UNK
     Route: 054
     Dates: start: 20100630, end: 20100716
  27. FAMOTIDINE [Suspect]
     Dosage: 15 MG, DAILY
     Route: 048
     Dates: start: 20100626, end: 20100715
  28. DIAZEPAM [Suspect]
     Dosage: 5 MG, UNK
     Route: 048
     Dates: start: 20100622, end: 20100701
  29. ROCEPHIN [Suspect]
     Indication: INFECTION
     Dosage: 2000 MG, 1X/DAY
     Route: 041
     Dates: start: 20100630, end: 20100707
  30. LACTOBACILLUS CASEI [Suspect]
     Dosage: 500 MG
     Route: 048
     Dates: start: 20100702, end: 20100709
  31. TRICLORYL [Suspect]
     Dosage: 20 ML, UID/QD
     Route: 048
     Dates: start: 20100628, end: 20100705
  32. EPINEPHRINE [Suspect]
     Dosage: 10 MG, UID/QD
     Route: 041
     Dates: start: 20100621, end: 20100621
  33. FENTANYL [Suspect]
     Dosage: UNK
     Route: 041
     Dates: start: 20100621, end: 20100708
  34. LANSOPRAZOLE [Suspect]
     Dosage: 7.5 MG, 2X/DAY
     Route: 048
     Dates: start: 20100628, end: 20100728
  35. ALDACTONE [Suspect]
     Dosage: 2.5 MG QID
     Route: 048
     Dates: start: 20100626, end: 20100706
  36. GLYCEOL [Suspect]
     Dosage: 200 ML
     Route: 041
     Dates: start: 20100617, end: 20100618
  37. CEFAZOLIN SODIUM [Suspect]
     Dosage: 1 G, UNK
     Route: 048
     Dates: start: 20100711, end: 20100718
  38. LASIX [Suspect]
     Dosage: 2.5 MG QID
     Route: 048
     Dates: start: 20100626, end: 20100706
  39. XYLOCAINE [Suspect]
     Dosage: 10 ML, 1X/DAY
     Route: 041
     Dates: start: 20100621, end: 20100709
  40. FAMOTIDINE [Suspect]
     Dosage: 8 MG, 2X/DAY
     Route: 041
     Dates: start: 20100617, end: 20100626
  41. MIDAZOLAM HCL [Suspect]
     Dosage: 10 MG UID/QD
     Route: 041
     Dates: start: 20100621, end: 20100621
  42. PHENOBARBITAL TAB [Suspect]
     Dosage: 50 MG, 2X/DAY
     Route: 048
     Dates: start: 20100622, end: 20100709
  43. AMPICILLIN [Suspect]
     Dosage: 375 MG, 1X/DAY
     Dates: start: 20100715, end: 20100716
  44. CLINDAMYCIN PHOSPHATE [Suspect]
     Dosage: 100 MG, 3X/DAY
     Route: 041
     Dates: start: 20100608, end: 20100710
  45. CALCIUM CARBONATE [Suspect]
     Dosage: 10 ML, UID/QD
     Route: 041
     Dates: start: 20100621, end: 20100621

REACTIONS (1)
  - DRUG RASH WITH EOSINOPHILIA AND SYSTEMIC SYMPTOMS [None]
